FAERS Safety Report 9994660 (Version 1)
Quarter: 2014Q1

REPORT INFORMATION
  Report Type: Spontaneous
  Country: US (occurrence: None)
  Receive Date: 20140307
  Receipt Date: 20140307
  Transmission Date: 20141002
  Serious: Yes (Hospitalization)
  Sender: FDA-Public Use
  Company Number: None

PATIENT
  Age: 74 Year
  Sex: Male
  Weight: 82.4 kg

DRUGS (4)
  1. 5-FU [Suspect]
     Indication: PANCREATIC CARCINOMA
  2. IRINOTECAN [Suspect]
  3. OXALIPLATIN [Suspect]
  4. LEUCOVORIN [Suspect]

REACTIONS (1)
  - Pyrexia [None]
